FAERS Safety Report 15614836 (Version 2)
Quarter: 2018Q4

REPORT INFORMATION
  Report Type: Spontaneous
  Country: FR (occurrence: FR)
  Receive Date: 20181114
  Receipt Date: 20181114
  Transmission Date: 20190205
  Serious: Yes (Hospitalization)
  Sender: FDA-Public Use
  Company Number: FR-TEVA-2018-FR-974832

PATIENT
  Age: 63 Year
  Sex: Male
  Weight: 110 kg

DRUGS (1)
  1. AMOXICILLINE ACIDE CLAVULANIQUE TEVA [Suspect]
     Active Substance: AMOXICILLIN\CLAVULANIC ACID
     Indication: DENTAL CARE
     Dosage: 3 DOSAGE FORMS DAILY;
     Route: 048
     Dates: start: 20180924, end: 20180924

REACTIONS (1)
  - Anaphylactic shock [Recovered/Resolved]

NARRATIVE: CASE EVENT DATE: 20180924
